FAERS Safety Report 12947541 (Version 2)
Quarter: 2017Q2

REPORT INFORMATION
  Report Type: Report from Study
  Country: US (occurrence: US)
  Receive Date: 20161116
  Receipt Date: 20170609
  Transmission Date: 20170830
  Serious: Yes (Hospitalization, Other)
  Sender: FDA-Public Use
  Company Number: US-TAKEDA-2016TUS020159

PATIENT
  Age: 59 Year
  Sex: Female
  Weight: 82.54 kg

DRUGS (5)
  1. VEDOLIZUMAB [Suspect]
     Active Substance: VEDOLIZUMAB
     Indication: CROHN^S DISEASE
     Dosage: 300 UNK, UNK
     Route: 042
     Dates: start: 2015
  2. NUCYNTA [Concomitant]
     Active Substance: TAPENTADOL HYDROCHLORIDE
     Indication: PAIN
     Dosage: 75 MG, BID
     Route: 048
  3. VEDOLIZUMAB [Suspect]
     Active Substance: VEDOLIZUMAB
     Dosage: 300 MG, UNK
     Route: 042
     Dates: start: 20170403
  4. CYMBALTA [Concomitant]
     Active Substance: DULOXETINE HYDROCHLORIDE
     Dosage: UNK
  5. METHADONE [Concomitant]
     Active Substance: METHADONE HYDROCHLORIDE
     Indication: PAIN
     Dosage: UNK

REACTIONS (10)
  - Head injury [Unknown]
  - Nasal ulcer [Unknown]
  - Fall [Not Recovered/Not Resolved]
  - Neck injury [Not Recovered/Not Resolved]
  - Pain [Recovered/Resolved]
  - Crohn^s disease [Recovered/Resolved]
  - Drug dose omission [Unknown]
  - Adhesion [Recovered/Resolved]
  - Memory impairment [Not Recovered/Not Resolved]
  - Contusion [Unknown]

NARRATIVE: CASE EVENT DATE: 20170523
